FAERS Safety Report 4596042-6 (Version None)
Quarter: 2005Q1

REPORT INFORMATION
  Report Type: 
  Country: None (occurrence: None)
  Receive Date: 20050224
  Receipt Date: 20050224
  Transmission Date: 20050727
  Serious: No
  Sender: FDA-Public Use
  Company Number: None

PATIENT
  Sex: Female
  Weight: 66.2252 kg

DRUGS (2)
  1. SYMMETREL [Suspect]
     Indication: PARKINSONISM
     Dosage: 1 DAILY
  2. MAXZIDE-25 [Suspect]
     Indication: HYPERTENSION
     Dosage: 1 DAILY

REACTIONS (2)
  - PHARMACEUTICAL PRODUCT COMPLAINT [None]
  - THINKING ABNORMAL [None]
